FAERS Safety Report 8233548-2 (Version None)
Quarter: 2012Q1

REPORT INFORMATION
  Report Type: 
  Country: None (occurrence: None)
  Receive Date: 20120326
  Receipt Date: 20120321
  Transmission Date: 20120608
  Serious: Yes (Hospitalization)
  Sender: FDA-Public Use
  Company Number: CA-JNJFOC-20120309907

PATIENT
  Age: 51 Year
  Sex: Female
  Weight: 58.51 kg

DRUGS (3)
  1. CETIRIZINE HYDROCHLORIDE [Suspect]
     Indication: RASH
     Route: 048
  2. CETIRIZINE HYDROCHLORIDE [Suspect]
     Route: 048
     Dates: start: 20020701, end: 20021001
  3. AN UNKNOWN MEDICATION [Concomitant]
     Route: 065

REACTIONS (5)
  - WEIGHT DECREASED [None]
  - CYST [None]
  - DIZZINESS [None]
  - PALPITATIONS [None]
  - WHITE BLOOD CELL COUNT DECREASED [None]
